FAERS Safety Report 21891189 (Version 3)
Quarter: 2023Q1

REPORT INFORMATION
  Report Type: Report from Study
  Country: KR (occurrence: KR)
  Receive Date: 20230120
  Receipt Date: 20230208
  Transmission Date: 20230418
  Serious: Yes (Death, Life-Threatening)
  Sender: FDA-Public Use
  Company Number: KR-MYLANLABS-2023M1005509

PATIENT
  Age: 69 Year
  Sex: Male
  Weight: 81 kg

DRUGS (39)
  1. XANAX [Interacting]
     Active Substance: ALPRAZOLAM
     Indication: Product used for unknown indication
     Dosage: 1 DOSAGE FORM
     Route: 048
     Dates: start: 20181018, end: 20181020
  2. XANAX [Interacting]
     Active Substance: ALPRAZOLAM
     Dosage: 2 DOSAGE FORM
     Route: 048
     Dates: start: 20181018, end: 20181020
  3. ACETAMINOPHEN [Interacting]
     Active Substance: ACETAMINOPHEN
     Indication: Product used for unknown indication
     Dosage: 4 DOSAGE FORM
     Route: 048
     Dates: start: 20181015, end: 20181015
  4. ACETAMINOPHEN\TRAMADOL [Interacting]
     Active Substance: ACETAMINOPHEN\TRAMADOL
     Indication: Product used for unknown indication
     Dosage: 2 DOSAGE FORM
     Route: 048
     Dates: start: 20181013, end: 20181030
  5. ACETAMINOPHEN\TRAMADOL [Interacting]
     Active Substance: ACETAMINOPHEN\TRAMADOL
     Dosage: 1 DOSAGE FORM, QD
     Route: 048
     Dates: start: 20181012, end: 20181012
  6. ACETAMINOPHEN\TRAMADOL [Interacting]
     Active Substance: ACETAMINOPHEN\TRAMADOL
     Dosage: 4 DOSAGE FORM
     Route: 048
     Dates: start: 20181015, end: 20181015
  7. MAGNESIUM OXIDE [Interacting]
     Active Substance: MAGNESIUM OXIDE
     Indication: Product used for unknown indication
     Dosage: 1500 MILLIGRAM
     Route: 048
     Dates: start: 20181016, end: 20181016
  8. MAGNESIUM OXIDE [Interacting]
     Active Substance: MAGNESIUM OXIDE
     Dosage: 1000 MILLIGRAM
     Route: 048
     Dates: start: 20181017, end: 20181023
  9. PIPERACILLIN SODIUM\TAZOBACTAM SODIUM [Interacting]
     Active Substance: PIPERACILLIN SODIUM\TAZOBACTAM SODIUM
     Indication: Product used for unknown indication
     Dosage: 1 DOSAGE FORM, QD
     Route: 042
     Dates: start: 20181019, end: 20181019
  10. PIPERACILLIN SODIUM\TAZOBACTAM SODIUM [Interacting]
     Active Substance: PIPERACILLIN SODIUM\TAZOBACTAM SODIUM
     Dosage: 13.5 GRAM
     Route: 042
     Dates: start: 20181020, end: 20181024
  11. TAMSULOSIN [Interacting]
     Active Substance: TAMSULOSIN
     Indication: Product used for unknown indication
     Dosage: 0.4 MILLIGRAM
     Route: 048
     Dates: start: 20181014, end: 20181023
  12. DIAZEPAM [Interacting]
     Active Substance: DIAZEPAM
     Indication: Product used for unknown indication
     Dosage: 5 MILLIGRAM, QD
     Route: 048
     Dates: start: 20181016, end: 20181016
  13. BISACODYL [Interacting]
     Active Substance: BISACODYL
     Indication: Product used for unknown indication
     Dosage: 40 MILLIGRAM
     Route: 054
     Dates: start: 20181018, end: 20181018
  14. BISACODYL\DOCUSATE SODIUM [Interacting]
     Active Substance: BISACODYL\DOCUSATE SODIUM
     Indication: Product used for unknown indication
     Dosage: 30 MILLILITER
     Route: 048
     Dates: start: 20181018, end: 20181023
  15. CEFIXIME [Interacting]
     Active Substance: CEFIXIME
     Indication: Product used for unknown indication
     Dosage: 200 MILLIGRAM
     Route: 048
     Dates: start: 20181024, end: 20181030
  16. CEFIXIME [Interacting]
     Active Substance: CEFIXIME
     Indication: Product used for unknown indication
     Dosage: 200 MILLIGRAM
     Route: 048
     Dates: start: 20181024, end: 20181030
  17. KETOROLAC TROMETHAMINE [Interacting]
     Active Substance: KETOROLAC TROMETHAMINE
     Indication: Product used for unknown indication
     Dosage: 30 MILLIGRAM, QD
     Route: 065
     Dates: start: 20181019, end: 20181019
  18. PROPACETAMOL HYDROCHLORIDE [Interacting]
     Active Substance: PROPACETAMOL HYDROCHLORIDE
     Indication: Product used for unknown indication
     Dosage: 1 GRAM
     Route: 042
     Dates: start: 20181019, end: 20181020
  19. PROPACETAMOL HYDROCHLORIDE [Interacting]
     Active Substance: PROPACETAMOL HYDROCHLORIDE
     Dosage: 4 DOSAGE FORM
     Route: 042
     Dates: start: 20181014, end: 20181014
  20. LACTULOSE [Interacting]
     Active Substance: LACTULOSE
     Indication: Product used for unknown indication
     Dosage: 45 MILLILITER
     Route: 048
     Dates: start: 20181024, end: 20181030
  21. BETHANECHOL CHLORIDE [Interacting]
     Active Substance: BETHANECHOL CHLORIDE
     Indication: Product used for unknown indication
     Dosage: 2.5 DOSAGE FORM, QD
     Route: 048
     Dates: start: 20181015, end: 20181015
  22. BETHANECHOL CHLORIDE [Interacting]
     Active Substance: BETHANECHOL CHLORIDE
     Dosage: 7 DOSAGE FORM
     Route: 048
     Dates: start: 20181016, end: 20181016
  23. BETHANECHOL CHLORIDE [Interacting]
     Active Substance: BETHANECHOL CHLORIDE
     Dosage: 6 DOSAGE FORM
     Route: 048
     Dates: start: 20181017, end: 20181023
  24. ACETYLCYSTEINE [Concomitant]
     Active Substance: ACETYLCYSTEINE
     Indication: Product used for unknown indication
     Dosage: 900 MILLIGRAM
     Route: 042
     Dates: start: 20181020, end: 20181024
  25. TRAMADOL HYDROCHLORIDE [Concomitant]
     Active Substance: TRAMADOL HYDROCHLORIDE
     Indication: Product used for unknown indication
     Dosage: 1 DOSAGE FORM, QD
     Route: 042
     Dates: start: 20181013, end: 20181013
  26. TRAMADOL HYDROCHLORIDE [Concomitant]
     Active Substance: TRAMADOL HYDROCHLORIDE
     Dosage: 4 DOSAGE FORM
     Route: 042
     Dates: start: 20181014, end: 20181014
  27. TRAMADOL HYDROCHLORIDE [Concomitant]
     Active Substance: TRAMADOL HYDROCHLORIDE
     Dosage: 3 DOSAGE FORM
     Route: 042
     Dates: start: 20181015, end: 20181015
  28. LIDOCAINE\PRILOCAINE [Concomitant]
     Active Substance: LIDOCAINE\PRILOCAINE
     Indication: Product used for unknown indication
     Dosage: UNK, 1 DAY
     Route: 061
     Dates: start: 20181012, end: 20181012
  29. METOCLOPRAMIDE [Interacting]
     Active Substance: METOCLOPRAMIDE
     Indication: Product used for unknown indication
     Dosage: 3 DOSAGE FORM
     Route: 048
     Dates: start: 20181015, end: 20181015
  30. METOCLOPRAMIDE [Interacting]
     Active Substance: METOCLOPRAMIDE
     Dosage: 2 DOSAGE FORM
     Route: 048
     Dates: start: 20181016, end: 20181021
  31. DIETARY SUPPLEMENT\HERBALS\MILK THISTLE [Interacting]
     Active Substance: DIETARY SUPPLEMENT\HERBALS\MILK THISTLE
     Indication: Product used for unknown indication
     Dosage: 2 DOSAGE FORM
     Route: 048
     Dates: start: 20181023, end: 20181030
  32. ZOLPIDEM TARTRATE [Concomitant]
     Active Substance: ZOLPIDEM TARTRATE
     Indication: Product used for unknown indication
     Dosage: 6.25 MILLIGRAM, QD
     Route: 048
     Dates: start: 20181017, end: 20181018
  33. ZOLPIDEM TARTRATE [Concomitant]
     Active Substance: ZOLPIDEM TARTRATE
     Dosage: 1 DOSAGE FORM, QD
     Route: 048
     Dates: start: 20181019, end: 20181020
  34. Carnitine hydrochloride;Cyanocobalamin;Cyproheptadine orotate;Lysine h [Concomitant]
     Indication: Product used for unknown indication
     Dosage: 1 DOSAGE FORM, QD
     Route: 048
     Dates: start: 20181019, end: 20181019
  35. Carnitine hydrochloride;Cyanocobalamin;Cyproheptadine orotate;Lysine h [Concomitant]
     Dosage: 2 DOSAGE FORM
     Route: 048
     Dates: start: 20181020, end: 20181024
  36. MEGESTROL ACETATE [Concomitant]
     Active Substance: MEGESTROL ACETATE
     Indication: Product used for unknown indication
     Dosage: 20 MILLILITER, QD
     Route: 048
     Dates: start: 20181019, end: 20181019
  37. SODIUM CHLORIDE [Concomitant]
     Active Substance: SODIUM CHLORIDE
     Indication: Product used for unknown indication
     Dosage: 10 MILLILITER, QD
     Route: 042
     Dates: start: 20181020, end: 20181020
  38. PROPACETAMOL HYDROCHLORIDE [Concomitant]
     Active Substance: PROPACETAMOL HYDROCHLORIDE
     Indication: Product use in unapproved indication
     Dosage: 4 DOSAGE FORM
     Route: 042
     Dates: start: 20181014, end: 20181014
  39. ACETAMINOPHEN\TRAMADOL HYDROCHLORIDE [Concomitant]
     Active Substance: ACETAMINOPHEN\TRAMADOL HYDROCHLORIDE
     Indication: Product used for unknown indication
     Dosage: 1 DOSAGE FORM, QD
     Route: 048
     Dates: start: 20181012, end: 20181012

REACTIONS (2)
  - Death [Fatal]
  - Drug interaction [Unknown]

NARRATIVE: CASE EVENT DATE: 20200701
